FAERS Safety Report 9228545 (Version 1)
Quarter: 2013Q2

REPORT INFORMATION
  Report Type: Report from Study
  Country: US (occurrence: US)
  Receive Date: 20130412
  Receipt Date: 20130412
  Transmission Date: 20140414
  Serious: Yes (Hospitalization, Other)
  Sender: FDA-Public Use
  Company Number: US-ABBOTT-13P-163-1073881-00

PATIENT
  Age: 46 Year
  Sex: Female
  Weight: 46.31 kg

DRUGS (6)
  1. HUMIRA [Suspect]
     Indication: CROHN^S DISEASE
     Dates: start: 201211, end: 201301
  2. REMICADE [Suspect]
     Indication: CROHN^S DISEASE
     Dates: start: 201301
  3. IMURAN [Concomitant]
     Indication: CROHN^S DISEASE
  4. ENTOCORT [Concomitant]
     Indication: CROHN^S DISEASE
  5. VITAMIN [Concomitant]
     Indication: PRODUCT USED FOR UNKNOWN INDICATION
  6. PRILOSEC [Concomitant]
     Indication: ANTACID THERAPY

REACTIONS (7)
  - Abdominal distension [Unknown]
  - Abdominal pain [Unknown]
  - Dyspnoea [Unknown]
  - Malaise [Unknown]
  - Vomiting [Unknown]
  - Drug ineffective [Unknown]
  - Intestinal mass [Unknown]
